FAERS Safety Report 17587177 (Version 3)
Quarter: 2020Q2

REPORT INFORMATION
  Report Type: Report from Study
  Country: US (occurrence: US)
  Receive Date: 20200326
  Receipt Date: 20200519
  Transmission Date: 20200713
  Serious: Yes (Death, Other)
  Sender: FDA-Public Use
  Company Number: US-PFIZER INC-2020125465

PATIENT
  Age: 65 Year
  Sex: Male

DRUGS (7)
  1. FOLINIC ACID [Suspect]
     Active Substance: LEUCOVORIN
     Indication: COLON CANCER METASTATIC
     Dosage: 400 MG/M2, CYCLIC (OVER 2 HOURS)
     Route: 042
  2. IRINOTECAN HCL [Suspect]
     Active Substance: IRINOTECAN HYDROCHLORIDE
     Indication: COLON CANCER METASTATIC
     Dosage: 180 MG/M2, CYCLIC (OVER 90 MINUTES)
     Route: 042
  3. FLUOROURACIL. [Suspect]
     Active Substance: FLUOROURACIL
     Dosage: 2400 MG/M2 CONTINUOUS IV OVER 46 HOURS
     Route: 042
  4. FLUOROURACIL. [Suspect]
     Active Substance: FLUOROURACIL
     Indication: COLON CANCER METASTATIC
     Dosage: 400 MG/M2, CYCLIC
     Route: 040
  5. OXALIPLATIN. [Suspect]
     Active Substance: OXALIPLATIN
     Indication: COLON CANCER METASTATIC
     Dosage: UNK, CYCLIC
  6. PELAREOREP [Concomitant]
     Active Substance: PELAREOREP
     Indication: COLON CANCER METASTATIC
     Dosage: 1X10^10 TO 3X10^10 TISSUE CULTURE INFECTIVE DOSE (TCID50) WERE ADMINISTERED IV OVER 1 HOUR ON DAYS 1
     Route: 042
  7. BEVACIZUMAB. [Suspect]
     Active Substance: BEVACIZUMAB
     Indication: COLON CANCER METASTATIC
     Dosage: UNK, CYCLIC

REACTIONS (2)
  - Bone marrow failure [Unknown]
  - Urosepsis [Fatal]
